FAERS Safety Report 6901769-4 (Version None)
Quarter: 2010Q3

REPORT INFORMATION
  Report Type: 
  Country: None (occurrence: None)
  Receive Date: 20100803
  Receipt Date: 20100722
  Transmission Date: 20110219
  Serious: Yes (Other)
  Sender: FDA-Public Use
  Company Number: FR-ELI_LILLY_AND_COMPANY-FR201007006714

PATIENT
  Age: 40 Year
  Sex: Male

DRUGS (4)
  1. ALIMTA [Suspect]
     Dosage: UNK, UNKNOWN
     Route: 065
  2. SOLUPRED [Concomitant]
     Dosage: 50 MG ON DAY 0 AND 1, UNKNOWN
     Route: 065
  3. SOLUPRED [Concomitant]
     Dosage: 40 MG ON DAY 2,3,4, UNKNOWN
     Route: 065
  4. ANTIHISTAMINES [Concomitant]
     Dosage: UNK, UNKNOWN
     Route: 065

REACTIONS (3)
  - BONE PAIN [None]
  - DERMATITIS [None]
  - RASH [None]
